FAERS Safety Report 20907015 (Version 1)
Quarter: 2022Q2

REPORT INFORMATION
  Report Type: Report from Study
  Country: BR (occurrence: BR)
  Receive Date: 20220602
  Receipt Date: 20220602
  Transmission Date: 20220721
  Serious: Yes (Other)
  Sender: FDA-Public Use
  Company Number: BR-JNJFOC-20220602406

PATIENT
  Age: 51 Year
  Sex: Female
  Weight: 87 kg

DRUGS (8)
  1. INFLIXIMAB [Suspect]
     Active Substance: INFLIXIMAB
     Indication: Ankylosing spondylitis
     Dosage: 5 VIALS
     Route: 042
     Dates: start: 20210119
  2. NIMESULIDE [Concomitant]
     Active Substance: NIMESULIDE
     Indication: Pain
  3. LEVOTHYROXINE [Concomitant]
     Active Substance: LEVOTHYROXINE
  4. LOSARTAN [Concomitant]
     Active Substance: LOSARTAN
  5. ATENOLOL [Concomitant]
     Active Substance: ATENOLOL
  6. STRONG HOKUPHAGEN [Concomitant]
  7. TYLENOL [Concomitant]
     Active Substance: ACETAMINOPHEN
     Indication: Pain
     Dosage: EXTRA DOSE
  8. DIPYRONE [Concomitant]
     Active Substance: DIPYRONE

REACTIONS (4)
  - Tuberculosis [Unknown]
  - Ankylosing spondylitis [Unknown]
  - Memory impairment [Unknown]
  - Influenza [Recovered/Resolved]

NARRATIVE: CASE EVENT DATE: 20220430
